FAERS Safety Report 15378498 (Version 2)
Quarter: 2019Q2

REPORT INFORMATION
  Report Type: Spontaneous
  Country: NO (occurrence: NO)
  Receive Date: 20180913
  Receipt Date: 20190604
  Transmission Date: 20190711
  Serious: Yes (Disabling)
  Sender: FDA-Public Use
  Company Number: NO-PFIZER INC-2018367344

PATIENT
  Age: 49 Year
  Sex: Male

DRUGS (3)
  1. DALACIN [Suspect]
     Active Substance: CLINDAMYCIN
     Indication: DERMATITIS ATOPIC
     Dosage: UNK
     Dates: start: 20140612, end: 20140622
  2. ELOCON [Concomitant]
     Active Substance: MOMETASONE FUROATE
     Indication: DERMATITIS ATOPIC
     Dosage: UNK
     Dates: start: 20140523
  3. FUCIDIN-HYDROCORTISON [Concomitant]
     Indication: DERMATITIS ATOPIC
     Dosage: UNK
     Dates: start: 201406

REACTIONS (8)
  - Housebound [Not Recovered/Not Resolved]
  - Polymorphic light eruption [Not Recovered/Not Resolved]
  - Skin swelling [Not Recovered/Not Resolved]
  - Skin fissures [Not Recovered/Not Resolved]
  - Solar dermatitis [Not Recovered/Not Resolved]
  - Urticaria [Unknown]
  - Rash generalised [Not Recovered/Not Resolved]
  - Rash erythematous [Not Recovered/Not Resolved]

NARRATIVE: CASE EVENT DATE: 201406
